FAERS Safety Report 13498798 (Version 1)
Quarter: 2017Q2

REPORT INFORMATION
  Report Type: Report from Study
  Country: FR (occurrence: FR)
  Receive Date: 20170501
  Receipt Date: 20170501
  Transmission Date: 20170830
  Serious: Yes (Death)
  Sender: FDA-Public Use
  Company Number: FR-ACCORD-050959

PATIENT
  Age: 46 Year
  Sex: Male

DRUGS (3)
  1. SERTRALINE [Suspect]
     Active Substance: SERTRALINE HYDROCHLORIDE
  2. IRBESARTAN. [Suspect]
     Active Substance: IRBESARTAN
  3. BACLOFEN. [Suspect]
     Active Substance: BACLOFEN

REACTIONS (2)
  - Asphyxia [Fatal]
  - Poisoning deliberate [Fatal]
